FAERS Safety Report 5155695-4 (Version None)
Quarter: 2006Q4

REPORT INFORMATION
  Report Type: 
  Country: None (occurrence: None)
  Receive Date: 20061114
  Receipt Date: 20061101
  Transmission Date: 20070319
  Serious: Yes (Other)
  Sender: FDA-Public Use
  Company Number: 2006135345

PATIENT
  Age: 65 Year
  Sex: Female
  Weight: 95.2554 kg

DRUGS (4)
  1. LIPITOR [Suspect]
     Indication: BLOOD CHOLESTEROL
     Dosage: 10 MG (10 MG, 1 IN 1 D)
  2. NEURONTIN [Suspect]
     Indication: DIABETIC NEUROPATHY
     Dosage: 800 MG (400 MG, 2 IN 1 D)
     Dates: start: 20050101
  3. GLIPIZIDE [Suspect]
     Indication: DIABETES MELLITUS
     Dosage: 2.5 MG (2.5 MG, 1 IN 1 D)
  4. SPIRONOLACTONE [Suspect]
     Indication: FLUID RETENTION
     Dates: start: 19800101

REACTIONS (4)
  - DERMATITIS CONTACT [None]
  - DIABETES MELLITUS [None]
  - DIABETIC NEUROPATHY [None]
  - RASH [None]
